FAERS Safety Report 23969054 (Version 1)
Quarter: 2024Q2

REPORT INFORMATION
  Report Type: Spontaneous
  Country: US (occurrence: US)
  Receive Date: 20240612
  Receipt Date: 20240612
  Transmission Date: 20240716
  Serious: No
  Sender: FDA-Public Use
  Company Number: US-RIGEL PHARMACEUTICALS, INC.-2024FOS000158

PATIENT
  Age: 71 Year
  Sex: Male

DRUGS (1)
  1. TAVALISSE [Suspect]
     Active Substance: FOSTAMATINIB
     Indication: Immune thrombocytopenia
     Dosage: 100 MG, BID
     Route: 048

REACTIONS (6)
  - Malaise [Unknown]
  - Swelling face [Unknown]
  - Insomnia [Unknown]
  - Oral pain [Unknown]
  - Dry mouth [Unknown]
  - Platelet count [Unknown]

NARRATIVE: CASE EVENT DATE: 20240101
